FAERS Safety Report 11799627 (Version 1)
Quarter: 2015Q4

REPORT INFORMATION
  Report Type: Report from Study
  Country: AU (occurrence: AU)
  Receive Date: 20151203
  Receipt Date: 20151203
  Transmission Date: 20160305
  Serious: Yes (Other)
  Sender: FDA-Public Use
  Company Number: AU-REGENERON PHARMACEUTICALS, INC.-2014-20947

PATIENT

DRUGS (5)
  1. EYLEA [Suspect]
     Active Substance: AFLIBERCEPT
     Dosage: UNK UNK, Q4WK
     Route: 031
  2. EYLEA [Suspect]
     Active Substance: AFLIBERCEPT
     Indication: NEOVASCULAR AGE-RELATED MACULAR DEGENERATION
     Dosage: UNK UNK, Q4WK
     Route: 031
     Dates: start: 20130729
  3. EYLEA [Suspect]
     Active Substance: AFLIBERCEPT
     Dosage: 2 MG, EVERY 7 WEEKS
     Route: 031
  4. EYLEA [Suspect]
     Active Substance: AFLIBERCEPT
     Dosage: 1 DF, Q8WK
     Route: 031
  5. BETADINE [Suspect]
     Active Substance: POVIDONE-IODINE

REACTIONS (7)
  - Conjunctival haemorrhage [Recovered/Resolved]
  - Arthritis [Unknown]
  - Eye haemorrhage [Unknown]
  - Spondylitis [Unknown]
  - Off label use [Unknown]
  - Retinal haemorrhage [Unknown]
  - Visual impairment [Unknown]

NARRATIVE: CASE EVENT DATE: 2013
